FAERS Safety Report 25955417 (Version 1)
Quarter: 2025Q4

REPORT INFORMATION
  Report Type: Spontaneous
  Country: EU (occurrence: EU)
  Receive Date: 20251024
  Receipt Date: 20251024
  Transmission Date: 20260117
  Serious: Yes (Other)
  Sender: BRISTOL-MYERS SQUIBB COMPANY
  Company Number: EU-IPSEN Group, Research and Development-2025-25802

PATIENT
  Age: 80 Year
  Sex: Male

DRUGS (2)
  1. NIVOLUMAB [Suspect]
     Active Substance: NIVOLUMAB
     Indication: Product used for unknown indication
     Dosage: Q14
     Dates: start: 202401
  2. CABOMETYX [Suspect]
     Active Substance: CABOZANTINIB S-MALATE
     Indication: Product used for unknown indication
     Dosage: 40 MG

REACTIONS (5)
  - Hypothyroidism [Unknown]
  - Cardiac failure [Unknown]
  - Pneumonia pseudomonal [Unknown]
  - Gastric mucosa erythema [Unknown]
  - Gastritis [Unknown]

NARRATIVE: CASE EVENT DATE: 20240101
